FAERS Safety Report 6413115-3 (Version None)
Quarter: 2009Q4

REPORT INFORMATION
  Report Type: 
  Country: None (occurrence: None)
  Receive Date: 20091022
  Receipt Date: 20091022
  Transmission Date: 20100525
  Serious: Yes (Other)
  Sender: FDA-Public Use
  Company Number: None

PATIENT
  Age: 24 Year
  Sex: Female
  Weight: 93.441 kg

DRUGS (2)
  1. YAZ [Suspect]
     Indication: DYSMENORRHOEA
     Dosage: 1 PILL BY MOUTH DAILY
     Route: 048
     Dates: start: 20080201, end: 20091001
  2. YAZ [Suspect]
     Indication: MENORRHAGIA
     Dosage: 1 PILL BY MOUTH DAILY
     Route: 048
     Dates: start: 20080201, end: 20091001

REACTIONS (4)
  - ENDOMETRIOSIS [None]
  - FLUID RETENTION [None]
  - NEPHROLITHIASIS [None]
  - SWELLING [None]
